FAERS Safety Report 18420502 (Version 1)
Quarter: 2020Q4

REPORT INFORMATION
  Report Type: Spontaneous
  Country: US (occurrence: US)
  Receive Date: 20201023
  Receipt Date: 20201023
  Transmission Date: 20210114
  Serious: Yes (Other)
  Sender: FDA-Public Use
  Company Number: US-MYLANLABS-2020M1087712

PATIENT
  Sex: Female

DRUGS (1)
  1. TRAMADOL. [Suspect]
     Active Substance: TRAMADOL
     Indication: PRODUCT USED FOR UNKNOWN INDICATION
     Dosage: UNK

REACTIONS (8)
  - Feeling abnormal [Unknown]
  - Overdose [Unknown]
  - Somnolence [Unknown]
  - Disability [Unknown]
  - Learning disability [Unknown]
  - Multiple cardiac defects [Unknown]
  - Heart rate increased [Unknown]
  - Pain [Unknown]
